FAERS Safety Report 7799911-9 (Version None)
Quarter: 2011Q4

REPORT INFORMATION
  Report Type: 
  Country: None (occurrence: None)
  Receive Date: 20111006
  Receipt Date: 20111003
  Transmission Date: 20120403
  Serious: Yes (Other)
  Sender: FDA-Public Use
  Company Number: CA-TEVA-303469USA

PATIENT
  Age: 15 Year
  Sex: Male

DRUGS (2)
  1. RISPERIDONE [Suspect]
     Indication: AUTISM
  2. RISPERIDONE [Suspect]
     Indication: TOURETTE'S DISORDER

REACTIONS (1)
  - OCULOGYRIC CRISIS [None]
